FAERS Safety Report 4535642-6 (Version None)
Quarter: 2004Q4

REPORT INFORMATION
  Report Type: 
  Country: None (occurrence: None)
  Receive Date: 20041222
  Receipt Date: 20041222
  Transmission Date: 20050328
  Serious: Yes (Other)
  Sender: FDA-Public Use
  Company Number: None

PATIENT
  Age: 43 Year
  Sex: Male
  Weight: 119.7496 kg

DRUGS (10)
  1. OXYCONTIN [Suspect]
     Indication: INTERVERTEBRAL DISC PROTRUSION
     Dosage: 80 MG PO TID ONSET ON 5/6/04
     Route: 048
     Dates: start: 20021001
  2. OXYCONTIN [Suspect]
     Indication: NECK PAIN
     Dosage: 80 MG PO TID ONSET ON 5/6/04
     Route: 048
     Dates: start: 20021001
  3. NITROSPAN [Concomitant]
  4. METHADONE [Concomitant]
  5. PERCOCET [Concomitant]
  6. ACCUPRIL [Concomitant]
  7. METFORMIN HCL [Concomitant]
  8. RISPERDAL [Concomitant]
  9. METOPROLOL [Concomitant]
  10. BANADINE [Concomitant]

REACTIONS (2)
  - PAIN EXACERBATED [None]
  - PHARMACEUTICAL PRODUCT COMPLAINT [None]
